FAERS Safety Report 6587737-3 (Version None)
Quarter: 2010Q1

REPORT INFORMATION
  Report Type: 
  Country: None (occurrence: None)
  Receive Date: 20100217
  Receipt Date: 20100217
  Transmission Date: 20100710
  Serious: Yes (Hospitalization)
  Sender: FDA-Public Use
  Company Number: None

PATIENT
  Age: 82 Year
  Sex: Male

DRUGS (2)
  1. VASOTEC [Suspect]
     Indication: HYPERTENSION
     Dosage: 10 MG Q12H PO
     Route: 048
     Dates: start: 20090529, end: 20090604
  2. COZAAR [Suspect]
     Dosage: 50 MG QAM PO
     Route: 048
     Dates: start: 20090529, end: 20090604

REACTIONS (1)
  - ANGIOEDEMA [None]
